FAERS Safety Report 14142783 (Version 1)
Quarter: 2017Q4

REPORT INFORMATION
  Report Type: Spontaneous
  Country: JP (occurrence: JP)
  Receive Date: 20171030
  Receipt Date: 20171030
  Transmission Date: 20180321
  Serious: Yes (Death, Other)
  Sender: FDA-Public Use
  Company Number: JP-PFIZER INC-2017462900

PATIENT
  Age: 69 Year
  Sex: Male
  Weight: 65.8 kg

DRUGS (4)
  1. NOR ADRENALIN [Concomitant]
     Indication: BLOOD PRESSURE MANAGEMENT
     Dosage: 6 ML/HR, UNK
     Dates: start: 20170919, end: 20171021
  2. METHYLPREDNISOLONE. [Suspect]
     Active Substance: METHYLPREDNISOLONE
     Indication: INTERSTITIAL LUNG DISEASE
     Dosage: UNK
     Dates: start: 20170919, end: 20171005
  3. PRECEDEX [Suspect]
     Active Substance: DEXMEDETOMIDINE HYDROCHLORIDE
     Indication: SEDATIVE THERAPY
     Dosage: UNK
     Dates: start: 20170919, end: 20171010
  4. FENTANYL. [Concomitant]
     Active Substance: FENTANYL
     Indication: SEDATIVE THERAPY
     Dosage: 0.5 ML/HR, UNK
     Dates: start: 20170919, end: 20171021

REACTIONS (7)
  - General physical health deterioration [Fatal]
  - Rhabdomyolysis [Unknown]
  - Blood creatine phosphokinase increased [Unknown]
  - Interstitial lung disease [Unknown]
  - Hypernatraemia [Unknown]
  - Blood chloride increased [Unknown]
  - Systemic candida [Unknown]

NARRATIVE: CASE EVENT DATE: 20170919
